FAERS Safety Report 20210945 (Version 6)
Quarter: 2023Q1

REPORT INFORMATION
  Report Type: Other
  Country: CA (occurrence: None)
  Receive Date: 20211221
  Receipt Date: 20230210
  Transmission Date: 20230417
  Serious: Yes (Other)
  Sender: FDA-Public Use
  Company Number: CA-ROCHE-2961094

PATIENT
  Age: 25 Year
  Sex: Female

DRUGS (3)
  1. OCREVUS [Suspect]
     Active Substance: OCRELIZUMAB
     Indication: Relapsing-remitting multiple sclerosis
     Dosage: 300 MG AT DAY 0 AND 14, THEN 600 MG EVERY 6 MONTH
     Route: 042
     Dates: start: 20191218
  2. OCREVUS [Suspect]
     Active Substance: OCRELIZUMAB
     Dosage: FIFTH INFUSION?DOSE: 600 MG IN 500 ML NS
     Route: 042
     Dates: start: 20211221
  3. COPAXONE [Concomitant]
     Active Substance: GLATIRAMER ACETATE

REACTIONS (4)
  - Postoperative wound infection [Recovered/Resolved]
  - Infusion related reaction [Recovered/Resolved]
  - Maternal exposure before pregnancy [Unknown]
  - Back pain [Not Recovered/Not Resolved]

NARRATIVE: CASE EVENT DATE: 20211221
